FAERS Safety Report 4909902-0 (Version None)
Quarter: 2006Q1

REPORT INFORMATION
  Report Type: 
  Country: None (occurrence: None)
  Receive Date: 20060208
  Receipt Date: 20060125
  Transmission Date: 20060701
  Serious: Yes (Hospitalization, Other)
  Sender: FDA-Public Use
  Company Number: HP200600012

PATIENT
  Age: 60 Year
  Sex: Female
  Weight: 93 kg

DRUGS (7)
  1. PANAFIL(PAPAIN, UREA, CHLOROPHYLLIN SODIUM COPPER COMPLEX) SPRAY [Suspect]
     Indication: PROMOTION OF WOUND HEALING
     Dosage: TOPICAL
     Route: 061
     Dates: start: 20051212, end: 20051212
  2. BACLOFEN [Concomitant]
  3. LORTAB [Concomitant]
  4. LIDODERM (LIDOCAINE) [Concomitant]
  5. DURAGESIC-100 [Concomitant]
  6. NEXIUM [Concomitant]
  7. THYROID TAB [Concomitant]

REACTIONS (5)
  - ANAPHYLACTIC SHOCK [None]
  - EYE IRRITATION [None]
  - LOSS OF CONSCIOUSNESS [None]
  - NAUSEA [None]
  - VOMITING [None]
